FAERS Safety Report 5559113-3 (Version None)
Quarter: 2007Q4

REPORT INFORMATION
  Report Type: 
  Country: None (occurrence: None)
  Receive Date: 20071214
  Receipt Date: 20070914
  Transmission Date: 20080405
  Serious: No
  Sender: FDA-Public Use
  Company Number: US-ABBOTT-07P-163-0417428-00

PATIENT
  Sex: Female
  Weight: 52.21 kg

DRUGS (6)
  1. HUMIRA [Suspect]
     Indication: CROHN'S DISEASE
     Route: 058
     Dates: start: 20070727
  2. HUMIRA [Suspect]
     Dosage: LOADING DOSE
     Route: 058
     Dates: start: 20070713, end: 20070713
  3. HUMIRA [Suspect]
     Dosage: LOADING DOSE
     Route: 058
     Dates: start: 20070629, end: 20070629
  4. LOMOTIL [Concomitant]
     Indication: CROHN'S DISEASE
     Route: 048
  5. PREDNISONE [Concomitant]
     Indication: CROHN'S DISEASE
     Route: 048
  6. QUESTRIAN [Concomitant]
     Indication: CROHN'S DISEASE
     Route: 048

REACTIONS (2)
  - DIARRHOEA [None]
  - DRUG INEFFECTIVE [None]
